FAERS Safety Report 14672451 (Version 11)
Quarter: 2020Q4

REPORT INFORMATION
  Report Type: Spontaneous
  Country: US (occurrence: US)
  Receive Date: 20180323
  Receipt Date: 20201229
  Transmission Date: 20210113
  Serious: Yes (Other)
  Sender: FDA-Public Use
  Company Number: US-PFIZER INC-2018117885

PATIENT
  Age: 70 Year
  Sex: Male
  Weight: 119 kg

DRUGS (5)
  1. LYRICA [Suspect]
     Active Substance: PREGABALIN
     Indication: DIABETIC NEUROPATHY
  2. LYRICA [Suspect]
     Active Substance: PREGABALIN
     Indication: FIBROMYALGIA
     Dosage: UNK
  3. LYRICA [Suspect]
     Active Substance: PREGABALIN
     Indication: NEURALGIA
  4. LYRICA [Suspect]
     Active Substance: PREGABALIN
     Indication: POLYNEUROPATHY
  5. LYRICA [Suspect]
     Active Substance: PREGABALIN
     Indication: NEUROPATHY PERIPHERAL
     Dosage: 200 MG, 3X/DAY
     Route: 048

REACTIONS (10)
  - Drug dependence [Unknown]
  - Weight decreased [Unknown]
  - Withdrawal syndrome [Unknown]
  - Pain [Unknown]
  - Influenza [Unknown]
  - Product dispensing error [Unknown]
  - Malaise [Unknown]
  - Cataract [Unknown]
  - Intentional product use issue [Unknown]
  - Hypersensitivity [Unknown]
